FAERS Safety Report 4556842-5 (Version None)
Quarter: 2005Q1

REPORT INFORMATION
  Report Type: 
  Country: None (occurrence: None)
  Receive Date: 20050118
  Receipt Date: 20050105
  Transmission Date: 20050727
  Serious: Yes (Other)
  Sender: FDA-Public Use
  Company Number: HQWYE422406JAN05

PATIENT
  Age: 16 Year
  Sex: Male
  Weight: 72.64 kg

DRUGS (2)
  1. EFFEXOR XR [Suspect]
     Indication: DEPRESSION
     Dosage: 150 MG 1X PER 1 DAY, ORAL
     Route: 048
     Dates: start: 20031001, end: 20041201
  2. ALCOHOL (ETHANOL) [Suspect]

REACTIONS (2)
  - AGGRESSION [None]
  - ALCOHOL USE [None]
